FAERS Safety Report 4876923-6 (Version None)
Quarter: 2006Q1

REPORT INFORMATION
  Report Type: 
  Country: None (occurrence: None)
  Receive Date: 20060110
  Receipt Date: 20060104
  Transmission Date: 20060701
  Serious: Yes (Hospitalization)
  Sender: FDA-Public Use
  Company Number: DE-ROCHE-430544

PATIENT
  Age: 42 Year
  Sex: Female
  Weight: 69 kg

DRUGS (2)
  1. LARIAM [Suspect]
     Indication: MALARIA PROPHYLAXIS
     Route: 065
  2. VALETTE [Concomitant]
     Route: 048

REACTIONS (10)
  - BLOOD ALKALINE PHOSPHATASE INCREASED [None]
  - BLOOD LACTATE DEHYDROGENASE INCREASED [None]
  - CHOLECYSTITIS ACUTE [None]
  - EPIGASTRIC DISCOMFORT [None]
  - GALLBLADDER OEDEMA [None]
  - HIATUS HERNIA [None]
  - JAUNDICE [None]
  - OCULAR ICTERUS [None]
  - PYREXIA [None]
  - TRANSAMINASES INCREASED [None]
